FAERS Safety Report 6516909-9 (Version None)
Quarter: 2009Q4

REPORT INFORMATION
  Report Type: 
  Country: None (occurrence: None)
  Receive Date: 20091223
  Receipt Date: 20091211
  Transmission Date: 20100525
  Serious: Yes (Hospitalization)
  Sender: FDA-Public Use
  Company Number: US-JNJFOC-20091204233

PATIENT
  Age: 5 Month
  Sex: Female
  Weight: 4.62 kg

DRUGS (2)
  1. MYLANTA [Suspect]
     Indication: VOMITING
     Dosage: 5 ML TO EACH BOTTLE
  2. INFANTS FORMULA [Suspect]
     Indication: MEDICAL DIET

REACTIONS (3)
  - HYPOPHOSPHATAEMIA [None]
  - NEPHROCALCINOSIS [None]
  - RICKETS [None]
